FAERS Safety Report 20063915 (Version 2)
Quarter: 2021Q4

REPORT INFORMATION
  Report Type: Spontaneous
  Country: BR (occurrence: BR)
  Receive Date: 20211112
  Receipt Date: 20211119
  Transmission Date: 20220303
  Serious: Yes (Other)
  Sender: FDA-Public Use
  Company Number: BR-ORGANON-O2111BRA000596

PATIENT
  Sex: Female

DRUGS (2)
  1. DESOGESTREL [Suspect]
     Active Substance: DESOGESTREL
     Dosage: UNK
     Route: 048
     Dates: start: 2021
  2. ETONOGESTREL [Suspect]
     Active Substance: ETONOGESTREL
     Indication: Contraception
     Dosage: 1 IMPLANT
     Route: 059
     Dates: start: 20201130

REACTIONS (9)
  - Blood loss anaemia [Not Recovered/Not Resolved]
  - Mental disorder [Not Recovered/Not Resolved]
  - Infection [Not Recovered/Not Resolved]
  - Sexual dysfunction [Not Recovered/Not Resolved]
  - Heavy menstrual bleeding [Not Recovered/Not Resolved]
  - Vaginal discharge [Unknown]
  - Asthenia [Not Recovered/Not Resolved]
  - Feeling abnormal [Unknown]
  - Malaise [Unknown]

NARRATIVE: CASE EVENT DATE: 20210601
